FAERS Safety Report 7791687-4 (Version None)
Quarter: 2011Q4

REPORT INFORMATION
  Report Type: 
  Country: None (occurrence: None)
  Receive Date: 20111003
  Receipt Date: 20110923
  Transmission Date: 20120403
  Serious: Yes (Other)
  Sender: FDA-Public Use
  Company Number: US-JNJFOC-20110910765

PATIENT
  Sex: Female

DRUGS (1)
  1. DOXORUBICIN HCL [Suspect]
     Indication: OVARIAN CANCER RECURRENT
     Route: 042
     Dates: end: 20110801

REACTIONS (4)
  - OVARIAN CANCER RECURRENT [None]
  - DRUG DOSE OMISSION [None]
  - FEELING ABNORMAL [None]
  - ADVERSE DRUG REACTION [None]
